FAERS Safety Report 12421917 (Version 1)
Quarter: 2016Q2

REPORT INFORMATION
  Report Type: Spontaneous
  Country: US (occurrence: US)
  Receive Date: 20160531
  Receipt Date: 20160531
  Transmission Date: 20160815
  Serious: No
  Sender: FDA-Public Use
  Company Number: US-009507513-1605USA012750

PATIENT
  Age: 57 Year
  Sex: Female

DRUGS (1)
  1. KEYTRUDA [Suspect]
     Active Substance: PEMBROLIZUMAB
     Indication: MESOTHELIOMA MALIGNANT
     Dosage: 140 MG, Q3W
     Route: 042
     Dates: start: 20160331, end: 2016

REACTIONS (3)
  - Adverse event [Unknown]
  - Product use issue [Unknown]
  - Hospice care [Unknown]

NARRATIVE: CASE EVENT DATE: 2016
